FAERS Safety Report 10398440 (Version 1)
Quarter: 2014Q1

REPORT INFORMATION
  Report Type: Spontaneous
  Country: US (occurrence: None)
  Receive Date: 20130815
  Receipt Date: 20130815
  Transmission Date: 20141002
  Serious: Yes (Hospitalization)
  Sender: FDA-Public Use
  Company Number: ADR-2013-00277

PATIENT
  Age: 72 Year
  Sex: Male

DRUGS (2)
  1. BACLOFEN UNKNOWN (BACLOFEN INTRATHECAL) [Suspect]
     Indication: MUSCLE SPASTICITY
  2. BACLOFEN UNKNOWN (BACLOFEN INTRATHECAL) [Suspect]
     Indication: MULTIPLE SCLEROSIS

REACTIONS (2)
  - Malaise [None]
  - Impaired healing [None]
